FAERS Safety Report 22251230 (Version 1)
Quarter: 2023Q2

REPORT INFORMATION
  Report Type: Report from Study
  Country: DE (occurrence: DE)
  Receive Date: 20230425
  Receipt Date: 20230425
  Transmission Date: 20230722
  Serious: Yes (Hospitalization)
  Sender: FDA-Public Use
  Company Number: DE-ELI_LILLY_AND_COMPANY-DE202304002511

PATIENT
  Age: 86 Year
  Sex: Female

DRUGS (2)
  1. METHOTREXATE SODIUM [Suspect]
     Active Substance: METHOTREXATE SODIUM
     Indication: Rheumatoid arthritis
     Dosage: 7.5 MG, WEEKLY
     Route: 065
     Dates: end: 202301
  2. BARICITINIB [Suspect]
     Active Substance: BARICITINIB
     Indication: Rheumatoid arthritis
     Dosage: 4 MG, DAILY
     Route: 048
     Dates: end: 20230124

REACTIONS (5)
  - Normochromic normocytic anaemia [Unknown]
  - Klebsiella bacteraemia [Recovered/Resolved]
  - Gastroenteritis [Recovered/Resolved]
  - Acute kidney injury [Unknown]
  - Orthostatic intolerance [Unknown]

NARRATIVE: CASE EVENT DATE: 20230124
